FAERS Safety Report 12136182 (Version 1)
Quarter: 2016Q1

REPORT INFORMATION
  Report Type: Spontaneous
  Country: US (occurrence: None)
  Receive Date: 20160301
  Receipt Date: 20160301
  Transmission Date: 20160526
  Serious: Yes (Other)
  Sender: FDA-Public Use
  Company Number: None

PATIENT
  Age: 63 Year
  Sex: Male
  Weight: 58.51 kg

DRUGS (7)
  1. ALFUZOSIN ER 10-MG (CAMBER PHARMACEUTICA [Suspect]
     Active Substance: ALFUZOSIN
     Indication: BLADDER CANCER
     Dosage: 1-PILL A DAY WITH FOOD ONCE MOUTH
     Route: 048
     Dates: start: 20160115, end: 20160119
  2. VITAMIN D3 [Concomitant]
     Active Substance: CHOLECALCIFEROL
  3. ZINC [Concomitant]
     Active Substance: ZINC\ZINC CHLORIDE
  4. VITAMIN B12 [Concomitant]
     Active Substance: CYANOCOBALAMIN
  5. E [Concomitant]
  6. AMLODIPINE [Concomitant]
     Active Substance: AMLODIPINE BESYLATE
  7. TAMSULOSIN [Concomitant]
     Active Substance: TAMSULOSIN

REACTIONS (1)
  - Dysuria [None]

NARRATIVE: CASE EVENT DATE: 20160115
